FAERS Safety Report 6831975-9 (Version None)
Quarter: 2010Q3

REPORT INFORMATION
  Report Type: 
  Country: None (occurrence: None)
  Receive Date: 20100712
  Receipt Date: 20090828
  Transmission Date: 20110219
  Serious: No
  Sender: FDA-Public Use
  Company Number: US-TYCO HEALTHCARE/MALLINCKRODT-T200901612

PATIENT
  Sex: Male
  Weight: 99.773 kg

DRUGS (3)
  1. OXYCODONE HCL AND ACETAMINOPHEN [Suspect]
     Indication: ARTHRALGIA
     Dosage: 1 TAB, 3-4X DAILY
     Route: 048
     Dates: start: 20090801, end: 20090801
  2. OXYCODONE HCL AND ACETAMINOPHEN [Suspect]
     Dosage: 4 TABLETS DAILY
     Route: 048
     Dates: start: 20090101, end: 20090101
  3. ZITHROMYCIN [Concomitant]
     Indication: ARTHRITIS
     Dosage: 500 MG, EVERY OTHER DAY

REACTIONS (3)
  - DRUG INEFFECTIVE [None]
  - PRODUCT SUBSTITUTION ISSUE [None]
  - PRODUCT TASTE ABNORMAL [None]
